FAERS Safety Report 10159287 (Version 1)
Quarter: 2014Q2

REPORT INFORMATION
  Report Type: Report from Study
  Country: US (occurrence: US)
  Receive Date: 20140508
  Receipt Date: 20140508
  Transmission Date: 20141212
  Serious: Yes (Hospitalization)
  Sender: FDA-Public Use
  Company Number: PHEH2014US009059

PATIENT
  Age: 49 Year
  Sex: Male

DRUGS (1)
  1. MYFORTIC [Suspect]
     Indication: HEART TRANSPLANT
     Dosage: 720 MG, TWICE A DAY
     Route: 048
     Dates: start: 201109

REACTIONS (5)
  - Thyroid function test abnormal [Unknown]
  - Swelling [Unknown]
  - Renal impairment [Unknown]
  - Dyspnoea [Unknown]
  - Vomiting [Unknown]
